FAERS Safety Report 5226532-4 (Version None)
Quarter: 2007Q1

REPORT INFORMATION
  Report Type: 
  Country: None (occurrence: None)
  Receive Date: 20070201
  Receipt Date: 20070125
  Transmission Date: 20070707
  Serious: Yes (Death)
  Sender: FDA-Public Use
  Company Number: US-JNJFOC-20050303752

PATIENT
  Sex: Female

DRUGS (7)
  1. REMICADE [Suspect]
     Indication: RHEUMATOID ARTHRITIS
     Route: 042
  2. METHOTREXATE [Concomitant]
  3. FOSAMAX [Concomitant]
  4. PAXIL [Concomitant]
  5. FOLIC ACID [Concomitant]
  6. XALATAN [Concomitant]
     Route: 047
  7. VITAMIN CAP [Concomitant]

REACTIONS (1)
  - OESOPHAGEAL CANCER METASTATIC [None]
